FAERS Safety Report 8529451 (Version 2)
Quarter: 2012Q4

REPORT INFORMATION
  Report Type: 
  Country: ES (occurrence: ES)
  Receive Date: 20120425
  Receipt Date: 20121018
  Transmission Date: 20130627
  Serious: Yes (Other)
  Sender: FDA-Public Use
  Company Number: ES-ROCHE-1059120

PATIENT

DRUGS (3)
  1. RIBAVIRIN [Suspect]
     Indication: HEPATITIS C
     Route: 048
  2. BI 201335 [Suspect]
     Indication: HEPATITIS C
     Dosage: daily
     Route: 065
  3. BI 207127 [Suspect]
     Indication: HEPATITIS C
     Route: 065

REACTIONS (2)
  - Rash [Unknown]
  - Photosensitivity reaction [Unknown]
